FAERS Safety Report 6376905-1 (Version None)
Quarter: 2009Q3

REPORT INFORMATION
  Report Type: 
  Country: None (occurrence: None)
  Receive Date: 20090925
  Receipt Date: 20090915
  Transmission Date: 20100115
  Serious: Yes (Other)
  Sender: FDA-Public Use
  Company Number: US-ROCHE-650968

PATIENT
  Sex: Female
  Weight: 72.1 kg

DRUGS (2)
  1. PEGASYS [Suspect]
     Indication: HEPATITIS C
     Dosage: FORM: PRE FILLED SYRINGE
     Route: 058
     Dates: start: 20090805, end: 20090901
  2. RIBASPHERE [Suspect]
     Indication: HEPATITIS C
     Dosage: DIVIDED DOSES; DOSE: 600 MG IN AM AND 400 MG IN PM
     Route: 048
     Dates: start: 20090805, end: 20090901

REACTIONS (15)
  - ABDOMINAL PAIN UPPER [None]
  - CHROMATURIA [None]
  - EPISTAXIS [None]
  - FAECES DISCOLOURED [None]
  - GINGIVAL BLEEDING [None]
  - HAEMANGIOMA [None]
  - HAEMATOCRIT DECREASED [None]
  - HAEMOGLOBIN DECREASED [None]
  - HEADACHE [None]
  - NAUSEA [None]
  - NIGHT SWEATS [None]
  - PLATELET COUNT DECREASED [None]
  - RED BLOOD CELL COUNT DECREASED [None]
  - SPLENOMEGALY [None]
  - WHITE BLOOD CELL COUNT DECREASED [None]
